FAERS Safety Report 8907199 (Version 2)
Quarter: 2012Q4

REPORT INFORMATION
  Report Type: 
  Country: DE (occurrence: DE)
  Receive Date: 20121114
  Receipt Date: 20121203
  Transmission Date: 20130627
  Serious: Yes (Death)
  Sender: FDA-Public Use
  Company Number: DE-BAXTER-2012BAX023071

PATIENT
  Sex: Male

DRUGS (1)
  1. KIOVIG [Suspect]
     Indication: MULTIFOCAL MOTOR NEUROPATHY
     Route: 065

REACTIONS (1)
  - Amyotrophic lateral sclerosis [Fatal]
